FAERS Safety Report 15979100 (Version 2)
Quarter: 2019Q2

REPORT INFORMATION
  Report Type: Report from Study
  Country: DE (occurrence: DE)
  Receive Date: 20190219
  Receipt Date: 20190403
  Transmission Date: 20190711
  Serious: Yes (Other)
  Sender: FDA-Public Use
  Company Number: DE-TEVA-2019-DE-1011930

PATIENT
  Age: 31 Year
  Sex: Female

DRUGS (2)
  1. COSENTYX [Suspect]
     Active Substance: SECUKINUMAB
     Dates: start: 201602
  2. COPAXONE [Suspect]
     Active Substance: GLATIRAMER ACETATE
     Indication: MULTIPLE SCLEROSIS
     Dates: start: 20160201

REACTIONS (11)
  - Epigastric discomfort [Unknown]
  - Viral skin infection [Unknown]
  - Bartholinitis [Unknown]
  - Pharyngitis bacterial [Unknown]
  - Fructose intolerance [Unknown]
  - Tinea pedis [Unknown]
  - Somatic symptom disorder [Unknown]
  - Depression [Unknown]
  - Colitis microscopic [Unknown]
  - Rotator cuff syndrome [Unknown]
  - Immune system disorder [Unknown]

NARRATIVE: CASE EVENT DATE: 201602
